FAERS Safety Report 5154656-9 (Version None)
Quarter: 2006Q4

REPORT INFORMATION
  Report Type: 
  Country: None (occurrence: None)
  Receive Date: 20061113
  Receipt Date: 20061101
  Transmission Date: 20070319
  Serious: Yes (Other)
  Sender: FDA-Public Use
  Company Number: 2006116421

PATIENT
  Age: 57 Year
  Sex: Female
  Weight: 80 kg

DRUGS (5)
  1. ZOLOFT [Suspect]
     Indication: DEPRESSION
     Dosage: 50 MG (25 MG, 2 IN 1 D) ORAL
     Route: 048
     Dates: start: 20060920
  2. ALPROX (ALPRAZOLAM) [Concomitant]
  3. METOPROLOL SUCCINATE [Concomitant]
  4. ENALAPRIL MALEATE [Concomitant]
  5. AMLODIPINE [Concomitant]

REACTIONS (2)
  - CONDITION AGGRAVATED [None]
  - HYPERTENSION [None]
